FAERS Safety Report 10288965 (Version 3)
Quarter: 2014Q3

REPORT INFORMATION
  Report Type: Spontaneous
  Country: US (occurrence: US)
  Receive Date: 20140709
  Receipt Date: 20140725
  Transmission Date: 20150326
  Serious: Yes (Hospitalization, Other)
  Sender: FDA-Public Use
  Company Number: US-RB PHARMACEUTICALS LIMITED-RB-59988-2013

PATIENT

DRUGS (7)
  1. ADDERALL [Concomitant]
     Active Substance: AMPHETAMINE ASPARTATE\AMPHETAMINE SULFATE\DEXTROAMPHETAMINE SACCHARATE\DEXTROAMPHETAMINE SULFATE
     Indication: ATTENTION DEFICIT/HYPERACTIVITY DISORDER
     Dosage: DOSING DETAILS UNKNOWN
     Route: 048
     Dates: start: 201305, end: 201310
  2. ADDERALL [Concomitant]
     Active Substance: AMPHETAMINE ASPARTATE\AMPHETAMINE SULFATE\DEXTROAMPHETAMINE SACCHARATE\DEXTROAMPHETAMINE SULFATE
     Dosage: DOSING REGIMEN UNKNOWN
     Route: 065
     Dates: start: 2013
  3. SUBOXONE [Suspect]
     Active Substance: BUPRENORPHINE HYDROCHLORIDE\NALOXONE HYDROCHLORIDE
     Indication: ALCOHOLISM
     Dosage: 8 MG,  ABOUT 4 YEARS
     Route: 060
     Dates: start: 2008, end: 2012
  4. BUPRENORPHINE GENERIC [Interacting]
     Active Substance: BUPRENORPHINE
     Indication: ALCOHOLISM
     Dosage: 8 MG, UNKNOWN
     Route: 060
     Dates: start: 2013
  5. SUBOXONE [Suspect]
     Active Substance: BUPRENORPHINE HYDROCHLORIDE\NALOXONE HYDROCHLORIDE
     Dosage: 8 MG, UNK
     Route: 060
     Dates: start: 2012, end: 2013
  6. ZOLADEX [Suspect]
     Active Substance: GOSERELIN ACETATE
     Indication: BREAST CANCER RECURRENT
     Dosage: UNKNOWN
     Route: 042
     Dates: start: 201304, end: 201307
  7. STRATTERA [Interacting]
     Active Substance: ATOMOXETINE HYDROCHLORIDE
     Indication: ATTENTION DEFICIT/HYPERACTIVITY DISORDER
     Dosage: DOSING DETAILS UNKNOWN
     Route: 048
     Dates: start: 2010, end: 201304

REACTIONS (15)
  - Trichorrhexis [Not Recovered/Not Resolved]
  - Breast cancer [Recovered/Resolved]
  - Headache [Unknown]
  - Intentional underdose [Unknown]
  - Skin papilloma [Not Recovered/Not Resolved]
  - Off label use [Not Recovered/Not Resolved]
  - Feeling abnormal [Unknown]
  - Alopecia [Not Recovered/Not Resolved]
  - Drug interaction [Unknown]
  - Secretion discharge [Unknown]
  - Drug dependence [Unknown]
  - Immune system disorder [Unknown]
  - Skin lesion [Unknown]
  - Asthenia [Unknown]
  - Lymphoedema [Not Recovered/Not Resolved]

NARRATIVE: CASE EVENT DATE: 20080404
